FAERS Safety Report 11805651 (Version 15)
Quarter: 2017Q1

REPORT INFORMATION
  Report Type: Report from Study
  Country: CA (occurrence: CA)
  Receive Date: 20151207
  Receipt Date: 20170208
  Transmission Date: 20170428
  Serious: Yes (Other)
  Sender: FDA-Public Use
  Company Number: CA-ROCHE-1319820

PATIENT
  Age: 55 Year
  Sex: Female
  Weight: 68.9 kg

DRUGS (6)
  1. ACTEMRA [Suspect]
     Active Substance: TOCILIZUMAB
     Route: 042
     Dates: start: 20140807
  2. HYDROXYCHLOROQUINE [Concomitant]
     Active Substance: HYDROXYCHLOROQUINE
  3. ACTEMRA [Suspect]
     Active Substance: TOCILIZUMAB
     Route: 042
     Dates: start: 20150511
  4. APO-LEFLUNOMIDE [Concomitant]
     Active Substance: LEFLUNOMIDE
  5. METHOTREXATE. [Concomitant]
     Active Substance: METHOTREXATE
  6. ACTEMRA [Suspect]
     Active Substance: TOCILIZUMAB
     Indication: RHEUMATOID ARTHRITIS
     Route: 042
     Dates: start: 20121025, end: 20170126

REACTIONS (16)
  - Hypotension [Unknown]
  - Laceration [Unknown]
  - Arthralgia [Not Recovered/Not Resolved]
  - Bronchitis [Recovered/Resolved]
  - Blood pressure increased [Unknown]
  - Blood pressure systolic increased [Unknown]
  - Pain in extremity [Unknown]
  - Acne [Not Recovered/Not Resolved]
  - Weight decreased [Unknown]
  - Vascular rupture [Unknown]
  - Joint swelling [Not Recovered/Not Resolved]
  - Gait disturbance [Unknown]
  - Arthralgia [Unknown]
  - Weight increased [Unknown]
  - Body temperature decreased [Unknown]
  - Drug effect decreased [Unknown]

NARRATIVE: CASE EVENT DATE: 2013
